FAERS Safety Report 8875755 (Version 2)
Quarter: 2012Q4

REPORT INFORMATION
  Report Type: 
  Country: BR (occurrence: BR)
  Receive Date: 20121030
  Receipt Date: 20121111
  Transmission Date: 20130627
  Serious: Yes (Other)
  Sender: FDA-Public Use
  Company Number: PHHY2012BR097280

PATIENT
  Sex: Male

DRUGS (1)
  1. RITALIN LA [Suspect]

REACTIONS (2)
  - Attention deficit/hyperactivity disorder [Unknown]
  - Agitation [Unknown]
